FAERS Safety Report 5232548-4 (Version None)
Quarter: 2007Q1

REPORT INFORMATION
  Report Type: 
  Country: None (occurrence: None)
  Receive Date: 20070207
  Receipt Date: 20070129
  Transmission Date: 20070707
  Serious: Yes (Hospitalization)
  Sender: FDA-Public Use
  Company Number: FR-GLAXOSMITHKLINE-B0456314A

PATIENT
  Age: 59 Year
  Sex: Male

DRUGS (2)
  1. ZELITREX [Suspect]
     Indication: DRUG USE FOR UNKNOWN INDICATION
     Route: 065
     Dates: start: 20060201, end: 20061016
  2. BACTRIM [Suspect]
     Route: 065
     Dates: start: 20060201, end: 20061016

REACTIONS (2)
  - BRONCHITIS [None]
  - PANCYTOPENIA [None]
